FAERS Safety Report 5387353-5 (Version None)
Quarter: 2007Q3

REPORT INFORMATION
  Report Type: 
  Country: None (occurrence: None)
  Receive Date: 20070716
  Receipt Date: 20070702
  Transmission Date: 20080115
  Serious: Yes (Hospitalization, Other)
  Sender: FDA-Public Use
  Company Number: US-ELI_LILLY_AND_COMPANY-US200704003270

PATIENT
  Age: 77 Year
  Sex: Female

DRUGS (4)
  1. FORTEO [Suspect]
     Indication: OSTEOPOROSIS
     Dosage: 20 UG, DAILY (1/D)
     Dates: start: 20070101
  2. PREDNISONE [Concomitant]
     Indication: SARCOIDOSIS
     Dosage: 10 MG, QOD
  3. ALPRAZOLAM [Concomitant]
     Indication: NERVOUSNESS
     Dosage: UNK, DAILY (1/D)
  4. MORPHINE SULFATE [Concomitant]
     Indication: SARCOIDOSIS
     Dosage: 90 MG, DAILY (1/D)

REACTIONS (9)
  - BACK PAIN [None]
  - CARDIOMEGALY [None]
  - NASAL CONGESTION [None]
  - NASOPHARYNGITIS [None]
  - NERVOUSNESS [None]
  - PNEUMONIA [None]
  - PULMONARY FIBROSIS [None]
  - RHINORRHOEA [None]
  - URINARY TRACT INFECTION [None]
